FAERS Safety Report 13727494 (Version 5)
Quarter: 2017Q3

REPORT INFORMATION
  Report Type: Spontaneous
  Country: KR (occurrence: KR)
  Receive Date: 20170706
  Receipt Date: 20170829
  Transmission Date: 20171127
  Serious: Yes (Hospitalization, Other)
  Sender: FDA-Public Use
  Company Number: KR-009507513-1701KOR010076

PATIENT
  Age: 53 Year
  Sex: Female
  Weight: 56.3 kg

DRUGS (28)
  1. ADRIAMYCIN [Concomitant]
     Active Substance: DOXORUBICIN HYDROCHLORIDE
     Dosage: 94.2 MG, ONCE (CYCLE 5)
     Route: 042
     Dates: start: 20160416, end: 20160416
  2. MACPERAN [Concomitant]
     Active Substance: METOCLOPRAMIDE HYDROCHLORIDE
     Indication: PROPHYLAXIS OF NAUSEA AND VOMITING
     Dosage: 10 MG, TID
     Route: 042
     Dates: start: 20160507, end: 20160508
  3. CISPLAN [Concomitant]
     Active Substance: CISPLATIN
     Dosage: STRENGTH: 50MG/100ML; 80 MG, ONCE (CYCLE 7)
     Route: 042
     Dates: start: 20160604, end: 20160604
  4. NASEA [Concomitant]
     Active Substance: RAMOSETRON HYDROCHLORIDE
     Indication: PREMEDICATION
     Dosage: 0.3 MG, ONCE
     Route: 042
     Dates: start: 20160508, end: 20160508
  5. CAFSOL [Concomitant]
     Dosage: 500 ML, ONCE
     Route: 042
     Dates: start: 20160607, end: 20160607
  6. DEX (DEXAMETHASONE SODIUM PHOSPHATE) [Concomitant]
     Dosage: 10 MG, ONCE; STRENGTH: 5MG/ML
     Route: 042
     Dates: start: 20160416, end: 20160416
  7. NASEA [Concomitant]
     Active Substance: RAMOSETRON HYDROCHLORIDE
     Dosage: 0.3 MG, ONCE
     Route: 042
     Dates: start: 20160604, end: 20160604
  8. CAFSOL [Concomitant]
     Indication: PROPHYLAXIS
     Dosage: 500 ML, ONCE
     Route: 042
     Dates: start: 20160507, end: 20160507
  9. MACPERAN [Concomitant]
     Active Substance: METOCLOPRAMIDE HYDROCHLORIDE
     Dosage: 1 AMP, TID
     Route: 042
     Dates: start: 20160608, end: 20160609
  10. HEPARIN SODIUM. [Concomitant]
     Active Substance: HEPARIN SODIUM
     Indication: PROPHYLAXIS
     Dosage: 1 ML, ONCE
     Route: 042
     Dates: start: 20160506, end: 20160506
  11. EMEND (FOSAPREPITANT DIMEGLUMINE) [Suspect]
     Active Substance: FOSAPREPITANT DIMEGLUMINE
     Indication: PROPHYLAXIS OF NAUSEA AND VOMITING
     Dosage: 150 MG, ONCE
     Route: 042
     Dates: start: 20160416, end: 20160416
  12. MACPERAN [Concomitant]
     Active Substance: METOCLOPRAMIDE HYDROCHLORIDE
     Dosage: 1 AMP, ONCE
     Route: 042
     Dates: start: 20160604, end: 20160604
  13. ADRIAMYCIN [Concomitant]
     Active Substance: DOXORUBICIN HYDROCHLORIDE
     Indication: BREAST CANCER
     Dosage: 96 MG, ONCE (CYCLE 6)
     Route: 042
     Dates: start: 20160508, end: 20160508
  14. DEXAMETHASONE. [Concomitant]
     Active Substance: DEXAMETHASONE
     Dosage: 8 MG, BID; 5TH OF JUNE 8ML AT NIGHT; 6TH AND 7 TH 8ML AT MORNING AND NIGHT
     Route: 048
     Dates: start: 20160605, end: 20160607
  15. DEXAMETHASONE. [Concomitant]
     Active Substance: DEXAMETHASONE
     Dosage: 8 MG, BID; 17TH OF APRIL 8 ML AT NIGHT; 18TH AND 19TH APRIL 8ML AT MONRNING AND NIGHT
     Route: 048
     Dates: start: 20160417, end: 20160419
  16. DEX (DEXAMETHASONE SODIUM PHOSPHATE) [Concomitant]
     Dosage: 10 MG, ONCE; STRENGTH: 5MG/ML
     Route: 042
     Dates: start: 20160604, end: 20160604
  17. NEXIUM [Concomitant]
     Active Substance: ESOMEPRAZOLE MAGNESIUM
     Indication: PROPHYLAXIS AGAINST GASTROINTESTINAL ULCER
     Dosage: 1 TABLET (20 MG), QD
     Route: 048
     Dates: start: 20160509, end: 20160511
  18. EMEND (FOSAPREPITANT DIMEGLUMINE) [Suspect]
     Active Substance: FOSAPREPITANT DIMEGLUMINE
     Dosage: 150 MG, ONCE
     Route: 042
     Dates: start: 20160604, end: 20160604
  19. ADRIAMYCIN [Concomitant]
     Active Substance: DOXORUBICIN HYDROCHLORIDE
     Dosage: 96 MG, ONCE (CYCLE 7)
     Route: 042
     Dates: start: 20160604, end: 20160604
  20. EMEND (FOSAPREPITANT DIMEGLUMINE) [Suspect]
     Active Substance: FOSAPREPITANT DIMEGLUMINE
     Dosage: 150 MG, ONCE
     Route: 042
     Dates: start: 20160508, end: 20160508
  21. CAFSOL [Concomitant]
     Dosage: 500 ML, ONCE
     Route: 042
     Dates: start: 20160604, end: 20160604
  22. MACPERAN [Concomitant]
     Active Substance: METOCLOPRAMIDE HYDROCHLORIDE
     Dosage: 10 MG, TID
     Route: 042
     Dates: start: 20160416, end: 20160416
  23. CISPLAN [Concomitant]
     Active Substance: CISPLATIN
     Indication: BREAST CANCER
     Dosage: STRENGTH: 50MG/100ML; 80 MG, ONCE (CYCLE 6)
     Route: 042
     Dates: start: 20160508, end: 20160508
  24. CISPLAN [Concomitant]
     Active Substance: CISPLATIN
     Dosage: STRENGTH: 50MG/100ML; 78.5 MG, ONCE (CYCLE 5)
     Route: 042
     Dates: start: 20160416, end: 20160416
  25. DEXAMETHASONE. [Concomitant]
     Active Substance: DEXAMETHASONE
     Indication: PROPHYLACTIC CHEMOTHERAPY
     Dosage: 8 MG, BID; 9TH MAY 8 ML AT NIGHT; 10TH AND 11TH MAY 8 ML AT MORNING AND NIGHT
     Route: 048
     Dates: start: 20160509, end: 20160511
  26. DEX (DEXAMETHASONE SODIUM PHOSPHATE) [Concomitant]
     Indication: PREMEDICATION
     Dosage: 10 MG, ONCE; STRENGTH: 5MG/ML
     Route: 042
     Dates: start: 20160508, end: 20160508
  27. NASEA [Concomitant]
     Active Substance: RAMOSETRON HYDROCHLORIDE
     Dosage: 0.3 MG, ONCE
     Route: 042
     Dates: start: 20160416, end: 20160416
  28. NEXIUM [Concomitant]
     Active Substance: ESOMEPRAZOLE MAGNESIUM
     Dosage: 1 TABLET (20 MG), QD
     Route: 048
     Dates: start: 20160604, end: 20160607

REACTIONS (7)
  - Pancytopenia [Recovered/Resolved]
  - Febrile neutropenia [Recovered/Resolved]
  - Pyrexia [Recovered/Resolved]
  - Thrombocytopenia [Recovered/Resolved]
  - Catheter site pain [Recovered/Resolved]
  - Neutropenia [Recovered/Resolved]
  - Cough [Recovered/Resolved]

NARRATIVE: CASE EVENT DATE: 20160518
